FAERS Safety Report 23105078 (Version 1)
Quarter: 2023Q4

REPORT INFORMATION
  Report Type: Spontaneous
  Country: US (occurrence: None)
  Receive Date: 20231023
  Receipt Date: 20231023
  Transmission Date: 20240110
  Serious: Yes (Hospitalization)
  Sender: FDA-Public Use
  Company Number: None

PATIENT
  Age: 83 Year
  Sex: Male
  Weight: 92 kg

DRUGS (1)
  1. CEFTRIAXONE SODIUM [Suspect]
     Active Substance: CEFTRIAXONE SODIUM
     Dosage: FREQUENCY : DAILY;?
     Route: 042
     Dates: start: 20230401, end: 20230503

REACTIONS (4)
  - Pruritus [None]
  - Rash [None]
  - Burning sensation [None]
  - Therapy cessation [None]

NARRATIVE: CASE EVENT DATE: 20230503
